FAERS Safety Report 23774833 (Version 3)
Quarter: 2024Q2

REPORT INFORMATION
  Report Type: Spontaneous
  Country: IL (occurrence: IL)
  Receive Date: 20240423
  Receipt Date: 20240530
  Transmission Date: 20240715
  Serious: Yes (Life-Threatening)
  Sender: FDA-Public Use
  Company Number: IL-AMERICAN REGENT INC-2024001392

PATIENT
  Age: 40 Year
  Sex: Female

DRUGS (3)
  1. FERINJECT [Suspect]
     Active Substance: FERRIC CARBOXYMALTOSE
     Indication: Product used for unknown indication
     Dosage: SCHEDULED DOSE 1000 MILLIGRAMS
     Dates: start: 20240404, end: 20240404
  2. FERINJECT [Suspect]
     Active Substance: FERRIC CARBOXYMALTOSE
     Dosage: UNK
     Route: 065
  3. FERINJECT [Suspect]
     Active Substance: FERRIC CARBOXYMALTOSE
     Dosage: UNK
     Route: 065

REACTIONS (5)
  - Cough [Unknown]
  - Suffocation feeling [Unknown]
  - Headache [Unknown]
  - Chest discomfort [Unknown]
  - Product quality issue [Unknown]

NARRATIVE: CASE EVENT DATE: 20240404
